FAERS Safety Report 10028781 (Version 2)
Quarter: 2014Q2

REPORT INFORMATION
  Report Type: Spontaneous
  Country: CA (occurrence: CA)
  Receive Date: 20140321
  Receipt Date: 20140505
  Transmission Date: 20141212
  Serious: Yes (Hospitalization, Other)
  Sender: FDA-Public Use
  Company Number: CA-BRISTOL-MYERS SQUIBB COMPANY-20530770

PATIENT
  Sex: Male

DRUGS (11)
  1. ELIQUIS [Suspect]
     Indication: ATRIAL FIBRILLATION
     Route: 048
     Dates: start: 20140105, end: 20140213
  2. PLAVIX [Concomitant]
     Indication: CORONARY ARTERIAL STENT INSERTION
  3. CANDESARTAN [Concomitant]
     Indication: MYOCARDIAL ISCHAEMIA
  4. LIPITOR [Concomitant]
     Indication: MYOCARDIAL ISCHAEMIA
  5. LASIX [Concomitant]
     Indication: CARDIAC FAILURE CONGESTIVE
  6. BISOPROLOL [Concomitant]
     Indication: CARDIAC FAILURE CONGESTIVE
  7. VITAMIN B12 [Concomitant]
     Indication: VITAMIN B12 DEFICIENCY
  8. INSULIN [Concomitant]
     Indication: DIABETES MELLITUS
  9. PARIET [Concomitant]
     Indication: GASTROOESOPHAGEAL REFLUX DISEASE
  10. PREDNISONE [Concomitant]
  11. SPIRONOLACTONE [Concomitant]
     Indication: CARDIAC FAILURE CONGESTIVE

REACTIONS (2)
  - Lower gastrointestinal haemorrhage [Recovered/Resolved]
  - Diabetes mellitus [Unknown]
